FAERS Safety Report 8930174 (Version 1)
Quarter: 2012Q4

REPORT INFORMATION
  Report Type: 
  Country: TR (occurrence: TR)
  Receive Date: 20121128
  Receipt Date: 20121128
  Transmission Date: 20130627
  Serious: Yes (Other)
  Sender: FDA-Public Use
  Company Number: TR-TEVA-371435ISR

PATIENT
  Age: 42 Year
  Sex: Female

DRUGS (4)
  1. DOXORUBICIN [Suspect]
     Indication: LYMPHOMA
     Route: 065
  2. VINCRISTINE [Suspect]
     Indication: LYMPHOMA
     Route: 065
  3. CYCLOPHOSPHAMIDE [Suspect]
     Indication: LYMPHOMA
     Route: 065
  4. RITUXIMAB [Suspect]
     Indication: LYMPHOMA
     Route: 065

REACTIONS (1)
  - Gastric perforation [Recovered/Resolved]
